FAERS Safety Report 17429793 (Version 4)
Quarter: 2020Q4

REPORT INFORMATION
  Report Type: Spontaneous
  Country: US (occurrence: US)
  Receive Date: 20200218
  Receipt Date: 20201222
  Transmission Date: 20210113
  Serious: Yes (Other)
  Sender: FDA-Public Use
  Company Number: US-PFIZER INC-2020066436

PATIENT
  Age: 67 Year

DRUGS (1)
  1. PREMARIN [Suspect]
     Active Substance: ESTROGENS, CONJUGATED
     Dosage: UNK

REACTIONS (10)
  - Brain neoplasm [Unknown]
  - Eye pain [Unknown]
  - Nervousness [Unknown]
  - Anxiety [Unknown]
  - Stress [Unknown]
  - Muscle twitching [Unknown]
  - Malaise [Unknown]
  - Weight decreased [Unknown]
  - Hot flush [Unknown]
  - Ulcerative keratitis [Unknown]
